FAERS Safety Report 5449538-9 (Version None)
Quarter: 2007Q3

REPORT INFORMATION
  Report Type: 
  Country: None (occurrence: None)
  Receive Date: 20070907
  Receipt Date: 20070806
  Transmission Date: 20080115
  Serious: Yes (Hospitalization)
  Sender: FDA-Public Use
  Company Number: 2007US001850

PATIENT
  Age: 68 Year
  Sex: Female

DRUGS (12)
  1. VESICARE [Suspect]
     Indication: URINARY INCONTINENCE
     Dosage: 10 MG, ORAL
     Route: 048
  2. INSULIN (INSULIN HUMAN) [Concomitant]
  3. GLUCOPHAGE [Concomitant]
  4. NORVASC [Concomitant]
  5. COREG [Concomitant]
  6. CLONIDINE [Concomitant]
  7. NEXIUM [Concomitant]
  8. ZOLOFT [Concomitant]
  9. TOPAMAX [Concomitant]
  10. HYDROCHLOROTHIAZIDE [Concomitant]
  11. ASPIRIN [Concomitant]
  12. MULTIVITAMIN [Concomitant]

REACTIONS (3)
  - BLOOD PRESSURE ABNORMAL [None]
  - CARDIAC PACEMAKER INSERTION [None]
  - CYSTITIS [None]
